FAERS Safety Report 12901276 (Version 4)
Quarter: 2016Q4

REPORT INFORMATION
  Report Type: Report from Study
  Country: None (occurrence: GB)
  Receive Date: 20161101
  Receipt Date: 20161117
  Transmission Date: 20170207
  Serious: Yes (Death, Hospitalization, Other)
  Sender: FDA-Public Use
  Company Number: GB-ABBVIE-16P-167-1763180-00

PATIENT
  Age: 67 Year
  Sex: Male
  Weight: 78 kg

DRUGS (10)
  1. VENETOCLAX [Suspect]
     Active Substance: VENETOCLAX
     Route: 048
     Dates: start: 20161019
  2. ALLOPURINOL. [Concomitant]
     Active Substance: ALLOPURINOL
     Indication: PROPHYLAXIS
  3. PARACETAMOL [Concomitant]
     Active Substance: ACETAMINOPHEN
     Indication: PYREXIA
     Dosage: INTERMITTENTLY - UP TO 4 TIMES PER DAY
     Route: 048
  4. VENETOCLAX [Suspect]
     Active Substance: VENETOCLAX
     Route: 048
     Dates: start: 20161012
  5. VENETOCLAX [Suspect]
     Active Substance: VENETOCLAX
     Route: 048
     Dates: start: 20161103, end: 20161109
  6. VENETOCLAX [Suspect]
     Active Substance: VENETOCLAX
     Route: 048
     Dates: start: 20161026, end: 20161031
  7. ASPIRIN. [Concomitant]
     Active Substance: ASPIRIN
     Indication: CORONARY ARTERIAL STENT INSERTION
     Route: 048
     Dates: start: 2011
  8. VENETOCLAX [Suspect]
     Active Substance: VENETOCLAX
     Indication: CHRONIC LYMPHOCYTIC LEUKAEMIA RECURRENT
     Route: 048
     Dates: start: 20161005
  9. ALLOPURINOL. [Concomitant]
     Active Substance: ALLOPURINOL
     Indication: TUMOUR LYSIS SYNDROME
     Route: 048
     Dates: start: 20161005
  10. ATORVASTATIN [Concomitant]
     Active Substance: ATORVASTATIN
     Indication: BLOOD CHOLESTEROL INCREASED
     Dosage: START DATE WAS GIVEN AS MANY YEARS
     Route: 048
     Dates: start: 2011

REACTIONS (28)
  - Infection [Fatal]
  - Neutropenia [Recovered/Resolved]
  - Cough [Unknown]
  - Infection [Unknown]
  - Lung consolidation [Unknown]
  - Blood alkaline phosphatase abnormal [Unknown]
  - Histiocytosis haematophagic [Fatal]
  - Disease progression [Unknown]
  - Pyrexia [Recovering/Resolving]
  - Neutropenia [Recovering/Resolving]
  - Chronic lymphocytic leukaemia [Fatal]
  - General physical health deterioration [Fatal]
  - C-reactive protein abnormal [Unknown]
  - Malaise [Fatal]
  - Haemoglobin abnormal [Unknown]
  - Lymphocyte count abnormal [Unknown]
  - Neutrophil count abnormal [Recovered/Resolved]
  - Blood albumin abnormal [Unknown]
  - Epstein-Barr virus test positive [Fatal]
  - Dysphagia [Fatal]
  - Chills [Not Recovered/Not Resolved]
  - Alanine aminotransferase abnormal [Unknown]
  - Blood bilirubin abnormal [Unknown]
  - Pyrexia [Fatal]
  - Chills [Fatal]
  - Pyrexia [Not Recovered/Not Resolved]
  - Decreased appetite [Unknown]
  - Blood sodium abnormal [Unknown]

NARRATIVE: CASE EVENT DATE: 201610
